FAERS Safety Report 19396175 (Version 1)
Quarter: 2021Q2

REPORT INFORMATION
  Report Type: Report from Study
  Country: IN (occurrence: IN)
  Receive Date: 20210609
  Receipt Date: 20210609
  Transmission Date: 20210717
  Serious: Yes (Hospitalization)
  Sender: FDA-Public Use
  Company Number: NVSC2021IN124042

PATIENT
  Sex: Male
  Weight: 51 kg

DRUGS (1)
  1. CERTICAN [Suspect]
     Active Substance: EVEROLIMUS
     Indication: LIVER TRANSPLANT
     Dosage: 1 MG, BID
     Route: 065
     Dates: start: 20180122, end: 20210515

REACTIONS (1)
  - Hernia [Recovered/Resolved]
